FAERS Safety Report 4746444-X (Version None)
Quarter: 2005Q3

REPORT INFORMATION
  Report Type: 
  Country: None (occurrence: None)
  Receive Date: 20050816
  Receipt Date: 20050816
  Transmission Date: 20060218
  Serious: Yes (Other)
  Sender: FDA-Public Use
  Company Number: None

PATIENT
  Sex: Male
  Weight: 80.7403 kg

DRUGS (1)
  1. KLONOPIN [Suspect]
     Indication: FEAR
     Dosage: 2 TABLETS ORAL
     Route: 048
     Dates: start: 20040923, end: 20041128

REACTIONS (7)
  - ABNORMAL DREAMS [None]
  - BRUXISM [None]
  - CONVULSION [None]
  - DRUG WITHDRAWAL SYNDROME [None]
  - INSOMNIA [None]
  - MUSCLE TWITCHING [None]
  - SUICIDAL IDEATION [None]
